FAERS Safety Report 9183115 (Version 1)
Quarter: 2013Q1

REPORT INFORMATION
  Report Type: Spontaneous
  Country: US (occurrence: US)
  Receive Date: 20130322
  Receipt Date: 20130322
  Transmission Date: 20140127
  Serious: No
  Sender: FDA-Public Use
  Company Number: US-BRISTOL-MYERS SQUIBB COMPANY-16906364

PATIENT
  Age: 43 Year
  Sex: Female

DRUGS (1)
  1. ERBITUX [Suspect]

REACTIONS (3)
  - Rash [Recovering/Resolving]
  - Skin haemorrhage [Recovering/Resolving]
  - Pain [Recovering/Resolving]
